FAERS Safety Report 9139684 (Version 1)
Quarter: 2013Q1

REPORT INFORMATION
  Report Type: Spontaneous
  Country: US (occurrence: US)
  Receive Date: 20130305
  Receipt Date: 20130305
  Transmission Date: 20140127
  Serious: No
  Sender: FDA-Public Use
  Company Number: US-ENDO PHARMACEUTICALS INC.-SPLN20110141

PATIENT
  Sex: Female
  Weight: 21.31 kg

DRUGS (3)
  1. SUPPRELIN LA [Suspect]
     Indication: PRECOCIOUS PUBERTY
     Route: 058
     Dates: start: 20091228, end: 201012
  2. SUPPRELIN LA [Suspect]
     Route: 058
     Dates: start: 20101215, end: 201112
  3. SUPPRELIN LA [Suspect]
     Route: 058
     Dates: start: 20111206

REACTIONS (4)
  - Acne [Recovering/Resolving]
  - Irritability [Recovering/Resolving]
  - Drug effect decreased [Recovering/Resolving]
  - Mood swings [Recovering/Resolving]
